FAERS Safety Report 7416908-9 (Version None)
Quarter: 2011Q2

REPORT INFORMATION
  Report Type: 
  Country: None (occurrence: None)
  Receive Date: 20110415
  Receipt Date: 20110408
  Transmission Date: 20111010
  Serious: Yes (Other)
  Sender: FDA-Public Use
  Company Number: US-JNJFOC-20110404666

PATIENT
  Age: 7 Decade
  Sex: Female

DRUGS (1)
  1. NUCYNTA [Suspect]
     Indication: PROCEDURAL PAIN
     Dosage: EVERY 4-6 HOURS
     Route: 048

REACTIONS (2)
  - DEPRESSION [None]
  - NIGHTMARE [None]
